FAERS Safety Report 4722906-6 (Version None)
Quarter: 2005Q3

REPORT INFORMATION
  Report Type: 
  Country: None (occurrence: None)
  Receive Date: 20050722
  Receipt Date: 20050713
  Transmission Date: 20060218
  Serious: Yes (Death, Hospitalization, Other)
  Sender: FDA-Public Use
  Company Number: GR-ABBOTT-05P-066-0305785-00

PATIENT
  Age: 42 Year
  Sex: Female
  Weight: 106 kg

DRUGS (9)
  1. KALETRA [Suspect]
     Indication: HIV INFECTION
     Route: 048
     Dates: start: 20050318, end: 20050711
  2. LAMIVUDINE + ZIDOVUDINE [Concomitant]
     Indication: HIV INFECTION
     Dosage: 600MG/300MG
     Route: 048
     Dates: start: 20050518, end: 20050630
  3. DIDANOSINE [Concomitant]
     Indication: HIV INFECTION
     Route: 048
     Dates: start: 20050630, end: 20050711
  4. LAMIVUDINE [Concomitant]
     Indication: HIV INFECTION
     Route: 048
     Dates: start: 20050630, end: 20050711
  5. WELLVONE ORAL SUSP [Concomitant]
     Indication: PNEUMOCYSTIS JIROVECI PNEUMONIA
     Route: 048
     Dates: start: 20050310, end: 20050711
  6. ZITHROMAX [Concomitant]
     Indication: MYCOBACTERIUM AVIUM COMPLEX INFECTION
     Route: 048
     Dates: start: 20050310, end: 20050711
  7. MOXONIDINE [Concomitant]
     Indication: HYPERTENSION
     Route: 048
     Dates: start: 20030601, end: 20050630
  8. FELODIPINE [Concomitant]
     Indication: HYPERTENSION
     Route: 048
     Dates: start: 20030601, end: 20050630
  9. FLUCONAZOLE [Concomitant]
     Indication: ORAL CANDIDIASIS
     Route: 042
     Dates: start: 20050705, end: 20050711

REACTIONS (3)
  - ACUTE RESPIRATORY FAILURE [None]
  - LYMPHADENOPATHY [None]
  - LYMPHOMA [None]
